FAERS Safety Report 9696893 (Version 1)
Quarter: 2013Q4

REPORT INFORMATION
  Report Type: Spontaneous
  Country: US (occurrence: US)
  Receive Date: 20131119
  Receipt Date: 20131119
  Transmission Date: 20140711
  Serious: No
  Sender: FDA-Public Use
  Company Number: US-GILEAD-2007-0013939

PATIENT
  Sex: Female
  Weight: 45.36 kg

DRUGS (16)
  1. LETAIRIS [Suspect]
     Indication: PULMONARY ARTERIAL HYPERTENSION
     Route: 048
  2. FOSAMAX PLUS D [Concomitant]
     Dosage: 70MG/2800 MG
     Route: 048
  3. ZOCOR [Concomitant]
     Route: 048
  4. COZAAR [Concomitant]
     Route: 048
  5. COSOPT EYE DROPS [Concomitant]
     Route: 047
  6. COREG [Concomitant]
     Route: 048
  7. ALPHAGAN [Concomitant]
     Route: 047
  8. LASIX [Concomitant]
     Route: 048
  9. PHOSPHOLINE IODIDE [Concomitant]
     Route: 047
  10. TRAVATAN [Concomitant]
     Route: 047
  11. SPIRONOLACTONE [Concomitant]
     Route: 048
  12. LEVOTHYROXINE [Concomitant]
     Route: 048
  13. ASPIRIN [Concomitant]
     Route: 048
  14. OCUVITE PRESERVISION [Concomitant]
     Route: 048
  15. CALCIUM [Concomitant]
     Route: 048
  16. VITAMIN B [Concomitant]
     Route: 048

REACTIONS (2)
  - Vision blurred [Unknown]
  - Dyspnoea [Unknown]
